FAERS Safety Report 12250427 (Version 2)
Quarter: 2016Q2

REPORT INFORMATION
  Report Type: Report from Study
  Country: US (occurrence: US)
  Receive Date: 20160408
  Receipt Date: 20160603
  Transmission Date: 20160815
  Serious: No
  Sender: FDA-Public Use
  Company Number: PHEH2016US008476

PATIENT
  Sex: Female
  Weight: 115 kg

DRUGS (1)
  1. ENTRESTO [Suspect]
     Active Substance: SACUBITRIL\VALSARTAN
     Indication: PRODUCT USED FOR UNKNOWN INDICATION
     Dosage: 24/26 MG, BID
     Route: 065
     Dates: start: 20160401

REACTIONS (2)
  - Dry skin [Recovered/Resolved]
  - Pruritus [Recovered/Resolved]
